FAERS Safety Report 5728387-8 (Version None)
Quarter: 2008Q2

REPORT INFORMATION
  Report Type: 
  Country: None (occurrence: None)
  Receive Date: 20080430
  Receipt Date: 20080415
  Transmission Date: 20081010
  Serious: Yes (Hospitalization)
  Sender: FDA-Public Use
  Company Number: 015#3#2008-00016

PATIENT
  Age: 80 Year
  Sex: Female

DRUGS (6)
  1. CORDIPLAST-10 (GLYCERYL TRINICRATE) [Suspect]
     Indication: ISCHAEMIC CARDIOMYOPATHY
     Dosage: TRANSDERMAL
     Route: 062
     Dates: start: 20070101
  2. BISOPROLOL(DOSE UNKNOWN). UNKNOWN (BISOPROLOL) [Suspect]
     Indication: ISCHAEMIC CARDIOMYOPATHY
     Dosage: 5 MG, ORAL
     Route: 048
     Dates: start: 20070820, end: 20070825
  3. TORSEMIDE [Suspect]
     Indication: ISCHAEMIC CARDIOMYOPATHY
     Dosage: 10 MG, ORAL
     Route: 048
     Dates: start: 20070101
  4. DIGOXIN [Suspect]
     Indication: ISCHAEMIC CARDIOMYOPATHY
     Dosage: ORAL
     Route: 048
     Dates: start: 20070101, end: 20070825
  5. OMEPRAZOLE [Concomitant]
  6. VALSARTAN 160 MG, COATED TABLETS (VALSARTAN) [Concomitant]

REACTIONS (1)
  - BRADYCARDIA [None]
